FAERS Safety Report 26031703 (Version 1)
Quarter: 2025Q4

REPORT INFORMATION
  Report Type: Spontaneous
  Country: CA (occurrence: CA)
  Receive Date: 20251112
  Receipt Date: 20251112
  Transmission Date: 20260118
  Serious: Yes (Hospitalization)
  Sender: CELLTRION
  Company Number: CA-CELLTRION INC.-2025CA040606

PATIENT

DRUGS (1)
  1. INFLIXIMAB [Suspect]
     Active Substance: INFLIXIMAB
     Indication: Ankylosing spondylitis
     Dosage: REMDANTRY IV 450 MG EVERY 6 WEEKS
     Route: 042
     Dates: start: 20250626

REACTIONS (2)
  - Hospitalisation [Unknown]
  - Intentional dose omission [Unknown]
